FAERS Safety Report 10841432 (Version 1)
Quarter: 2015Q1

REPORT INFORMATION
  Report Type: Report from Study
  Country: US (occurrence: US)
  Receive Date: 20150220
  Receipt Date: 20150220
  Transmission Date: 20150721
  Serious: Yes (Other)
  Sender: FDA-Public Use
  Company Number: US-AMGEN-USASL2015015328

PATIENT
  Age: 54 Year
  Sex: Male

DRUGS (1)
  1. ENBREL [Suspect]
     Active Substance: ETANERCEPT
     Indication: PSORIATIC ARTHROPATHY
     Dosage: 50 MG, QWK
     Route: 065
     Dates: start: 20140406, end: 201501

REACTIONS (6)
  - Upper limb fracture [Not Recovered/Not Resolved]
  - Exostosis [Not Recovered/Not Resolved]
  - Carpal tunnel syndrome [Unknown]
  - Joint crepitation [Not Recovered/Not Resolved]
  - Joint effusion [Not Recovered/Not Resolved]
  - Arthralgia [Not Recovered/Not Resolved]
